FAERS Safety Report 5798183-4 (Version None)
Quarter: 2008Q3

REPORT INFORMATION
  Report Type: 
  Country: None (occurrence: None)
  Receive Date: 20080702
  Receipt Date: 20080626
  Transmission Date: 20090109
  Serious: Yes (Other)
  Sender: FDA-Public Use
  Company Number: A0734989A

PATIENT
  Sex: Female

DRUGS (3)
  1. PAXIL [Suspect]
     Indication: DEPRESSION
     Dosage: 10MG PER DAY
     Route: 048
     Dates: start: 19980101, end: 20010101
  2. IMITREX [Concomitant]
  3. XANAX [Concomitant]

REACTIONS (21)
  - ABNORMAL BEHAVIOUR [None]
  - ANOREXIA [None]
  - ANXIETY [None]
  - APATHY [None]
  - ASTHENIA [None]
  - BLOOD GLUCOSE ABNORMAL [None]
  - CONFUSIONAL STATE [None]
  - HYPERHIDROSIS [None]
  - IMMOBILE [None]
  - INSOMNIA [None]
  - LOSS OF LIBIDO [None]
  - MANIA [None]
  - MENTAL STATUS CHANGES [None]
  - MUSCLE SPASMS [None]
  - PANIC DISORDER [None]
  - PARAESTHESIA [None]
  - PERSONALITY CHANGE [None]
  - POST-TRAUMATIC STRESS DISORDER [None]
  - SERUM SEROTONIN INCREASED [None]
  - TREMOR [None]
  - WEIGHT DECREASED [None]
